FAERS Safety Report 4490601-7 (Version None)
Quarter: 2004Q4

REPORT INFORMATION
  Report Type: 
  Country: None (occurrence: None)
  Receive Date: 20041027
  Receipt Date: 20041012
  Transmission Date: 20050328
  Serious: Yes (Disabling)
  Sender: FDA-Public Use
  Company Number: 9015

PATIENT
  Age: 75 Year
  Sex: Male

DRUGS (3)
  1. PAMIDRONATE DISODIUM [Suspect]
     Indication: OSTEOPOROSIS
     Dosage: 30 MG PER CYCLE
     Route: 042
     Dates: start: 20040701
  2. SIMVASTATIN [Concomitant]
  3. OMEPRAZOLE [Concomitant]

REACTIONS (1)
  - VISUAL ACUITY REDUCED [None]
